FAERS Safety Report 13115282 (Version 1)
Quarter: 2017Q1

REPORT INFORMATION
  Report Type: Spontaneous
  Country: US (occurrence: US)
  Receive Date: 20170113
  Receipt Date: 20170113
  Transmission Date: 20170428
  Serious: No
  Sender: FDA-Public Use
  Company Number: US-PERRIGO-15US013577

PATIENT
  Age: 34 Year
  Sex: Male

DRUGS (1)
  1. ACETAMINOPHEN-ASPIRIN-CAFFEINE [Suspect]
     Active Substance: ACETAMINOPHEN\ASPIRIN\CAFFEINE
     Indication: HEADACHE
     Dosage: 1 TABLET, SINGLE
     Route: 048
     Dates: start: 20151227, end: 20151227

REACTIONS (5)
  - Sneezing [Recovered/Resolved]
  - Ear pruritus [Recovered/Resolved]
  - Periorbital oedema [Recovered/Resolved]
  - Underdose [Recovered/Resolved]
  - Expired product administered [Recovered/Resolved]

NARRATIVE: CASE EVENT DATE: 20151227
